FAERS Safety Report 5407691-7 (Version None)
Quarter: 2007Q3

REPORT INFORMATION
  Report Type: 
  Country: None (occurrence: None)
  Receive Date: 20070713
  Receipt Date: 20070524
  Transmission Date: 20080115
  Serious: No
  Sender: FDA-Public Use
  Company Number: 2007SP001961

PATIENT
  Age: 56 Year
  Sex: Female
  Weight: 76.2043 kg

DRUGS (7)
  1. LUNESTA [Suspect]
     Indication: INSOMNIA
     Dosage: 2 MG; PRN; ORAL
     Route: 048
     Dates: start: 20070501
  2. EXCEDRIN [Concomitant]
  3. FOLIC ACID [Concomitant]
  4. METFORMIN HCL [Concomitant]
  5. FEXOFENADINE [Concomitant]
  6. MUSCLE RELAXANTS [Concomitant]
  7. WARFARIN SODIUM [Concomitant]

REACTIONS (1)
  - INITIAL INSOMNIA [None]
